FAERS Safety Report 18448163 (Version 1)
Quarter: 2020Q4

REPORT INFORMATION
  Report Type: Spontaneous
  Country: RU (occurrence: RU)
  Receive Date: 20201030
  Receipt Date: 20201030
  Transmission Date: 20210114
  Serious: Yes (Other)
  Sender: FDA-Public Use
  Company Number: RU-ASTRAZENECA-2020SF39292

PATIENT
  Age: 61 Year
  Sex: Female
  Weight: 120 kg

DRUGS (3)
  1. FORADIL [Suspect]
     Active Substance: FORMOTEROL FUMARATE
     Indication: ASTHMA
     Dosage: 12 + 400 MCG/CAPSULE, 2 CAPSULES BID
     Route: 055
     Dates: start: 20200515, end: 20200517
  2. SYMBICORT [Suspect]
     Active Substance: BUDESONIDE\FORMOTEROL FUMARATE DIHYDRATE
     Indication: ASTHMA
     Dosage: 4.5 + 160 MCG/DOSE 2 DOSES TWO TIMES A DAY
     Route: 055
     Dates: start: 20200920, end: 20200921
  3. FORMISONID [Suspect]
     Active Substance: BUDESONIDE\FORMOTEROL FUMARATE DIHYDRATE
     Indication: ASTHMA
     Dosage: 4.5 + 160 MCG/DOSE 2 DOSES BID
     Route: 055
     Dates: start: 20200727, end: 20200729

REACTIONS (2)
  - Dermatitis allergic [Recovered/Resolved]
  - Dyspnoea [Recovered/Resolved]
